FAERS Safety Report 8066906-X (Version None)
Quarter: 2012Q1

REPORT INFORMATION
  Report Type: 
  Country: None (occurrence: None)
  Receive Date: 20120124
  Receipt Date: 20120117
  Transmission Date: 20120608
  Serious: Yes (Hospitalization)
  Sender: FDA-Public Use
  Company Number: PHHY2012TR004103

PATIENT
  Age: 16 Year
  Sex: Male

DRUGS (6)
  1. VANCOMYCIN [Suspect]
  2. AMIKACIN [Suspect]
     Indication: FEBRILE NEUTROPENIA
     Dosage: 15 MG/KG, QD
  3. IMMUNE GLOBULIN (HUMAN) [Suspect]
  4. MEROPENEM [Suspect]
  5. AMPHOTERICIN B [Suspect]
  6. CEFTAZIDIME [Concomitant]
     Indication: FEBRILE NEUTROPENIA
     Dosage: 150 MG/KG, QD

REACTIONS (9)
  - PYREXIA [None]
  - SERUM SICKNESS-LIKE REACTION [None]
  - TRANSAMINASES INCREASED [None]
  - SWELLING FACE [None]
  - RASH MACULO-PAPULAR [None]
  - DIARRHOEA [None]
  - OEDEMA PERIPHERAL [None]
  - RASH ERYTHEMATOUS [None]
  - THROMBOCYTOPENIA [None]
